FAERS Safety Report 10496774 (Version 3)
Quarter: 2014Q4

REPORT INFORMATION
  Report Type: Spontaneous
  Country: US (occurrence: US)
  Receive Date: 20141006
  Receipt Date: 20141014
  Transmission Date: 20150528
  Serious: Yes (Hospitalization, Disabling)
  Sender: FDA-Public Use
  Company Number: US-UNITED THERAPEUTICS-UNT-2014-007278

PATIENT
  Age: 14 Year
  Sex: Female
  Weight: 46.3 kg

DRUGS (4)
  1. REMODULIN [Suspect]
     Active Substance: TREPROSTINIL
     Dosage: 0.1812 ?G/KG, CONTINUING
     Route: 058
     Dates: start: 20130417
  2. REMODULIN [Suspect]
     Active Substance: TREPROSTINIL
     Indication: PULMONARY ARTERIAL HYPERTENSION
     Dosage: 0.1812 ?G/KG, CONTINUING
     Route: 058
     Dates: start: 20130417
  3. LETAIRIS [Concomitant]
     Active Substance: AMBRISENTAN
     Indication: PRODUCT USED FOR UNKNOWN INDICATION
  4. TADALAFIL [Suspect]
     Active Substance: TADALAFIL
     Indication: PRODUCT USED FOR UNKNOWN INDICATION
     Dosage: UNK

REACTIONS (11)
  - Incorrect dosage administered [Recovered/Resolved]
  - Pulmonary embolism [Unknown]
  - Haematemesis [Recovered/Resolved]
  - Diarrhoea [Recovered/Resolved]
  - Respiratory failure [Unknown]
  - Seasonal allergy [Unknown]
  - Haemothorax [Unknown]
  - Atelectasis [Unknown]
  - Haemoptysis [Recovered/Resolved]
  - Syncope [Unknown]
  - Weight decreased [Unknown]

NARRATIVE: CASE EVENT DATE: 20140901
